FAERS Safety Report 8844212 (Version 1)
Quarter: 2012Q4

REPORT INFORMATION
  Report Type: 
  Country: US (occurrence: US)
  Receive Date: 20121016
  Receipt Date: 20121016
  Transmission Date: 20130627
  Serious: Yes (Other)
  Sender: FDA-Public Use
  Company Number: US-SANOFI-AVENTIS-2012SA073421

PATIENT
  Age: 20 Year
  Sex: Female

DRUGS (2)
  1. PLAQUENIL [Suspect]
     Indication: LUPUS SYNDROME
     Route: 048
     Dates: start: 2011
  2. PLAQUENIL [Suspect]
     Indication: JUVENILE RHEUMATOID ARTHRITIS
     Route: 048
     Dates: start: 2011

REACTIONS (4)
  - Hypermetropia [Not Recovered/Not Resolved]
  - Sleep terror [Recovered/Resolved]
  - Depression [Recovered/Resolved]
  - Suicidal ideation [Recovered/Resolved]
